FAERS Safety Report 9468077 (Version 1)
Quarter: 2013Q3

REPORT INFORMATION
  Report Type: Spontaneous
  Country: JP (occurrence: JP)
  Receive Date: 20130821
  Receipt Date: 20130821
  Transmission Date: 20140515
  Serious: Yes (Other)
  Sender: FDA-Public Use
  Company Number: JP-SUCAMPO PHARMA AMERICAS, INC-SPI201300492

PATIENT
  Age: 72 Year
  Sex: Male

DRUGS (1)
  1. AMITIZA [Suspect]
     Dosage: 24 MCG, UNK
     Route: 048

REACTIONS (3)
  - Rhabdomyolysis [Unknown]
  - Blood creatine phosphokinase increased [Unknown]
  - Hyperthermia [Unknown]
